FAERS Safety Report 8476222-X (Version None)
Quarter: 2012Q2

REPORT INFORMATION
  Report Type: 
  Country: None (occurrence: None)
  Receive Date: 20120628
  Receipt Date: 20120621
  Transmission Date: 20120825
  Serious: Yes (Death)
  Sender: FDA-Public Use
  Company Number: US-ACTELION-A-US2012-67786

PATIENT

DRUGS (8)
  1. DEMEROL [Concomitant]
  2. VENTAVIS [Suspect]
     Indication: PULMONARY ARTERIAL HYPERTENSION
     Dosage: 2.5 ?G, UNK
     Route: 055
     Dates: start: 20110302, end: 20120312
  3. HYDROCHLOROTHIAZIDE [Concomitant]
  4. PAREGORICO [Concomitant]
  5. REVATIO [Concomitant]
  6. ALLOPURINOL [Concomitant]
  7. HYDROCODONE BITARTRATE [Concomitant]
  8. ROPINIROLE [Concomitant]

REACTIONS (1)
  - PULMONARY ARTERIAL HYPERTENSION [None]
